FAERS Safety Report 7015561-6 (Version None)
Quarter: 2010Q3

REPORT INFORMATION
  Report Type: 
  Country: None (occurrence: None)
  Receive Date: 20100922
  Receipt Date: 20100914
  Transmission Date: 20110219
  Serious: Yes (Other)
  Sender: FDA-Public Use
  Company Number: 2010SP041380

PATIENT
  Age: 72 Year
  Sex: Male
  Weight: 61 kg

DRUGS (9)
  1. PEG-INTRON [Suspect]
     Indication: HEPATITIS C
     Dosage: 100 MCG;QW;SC ; 100 MCG;QW;SC
     Route: 058
     Dates: start: 20100714, end: 20100721
  2. PEG-INTRON [Suspect]
     Indication: HEPATITIS C
     Dosage: 100 MCG;QW;SC ; 100 MCG;QW;SC
     Route: 058
     Dates: start: 20100728, end: 20100901
  3. REBETOL [Suspect]
     Indication: HEPATITIS C
     Dosage: 800 MG;QD;PO ; 400 MG;QD;PO
     Route: 048
     Dates: start: 20100714, end: 20100721
  4. REBETOL [Suspect]
     Indication: HEPATITIS C
     Dosage: 800 MG;QD;PO ; 400 MG;QD;PO
     Route: 048
     Dates: start: 20100804, end: 20100907
  5. AMLODIN OD [Concomitant]
  6. METFORMIN HCL [Concomitant]
  7. GASTER D [Concomitant]
  8. MAGMITT [Concomitant]
  9. PURSENNID [Concomitant]

REACTIONS (1)
  - HAEMOLYTIC URAEMIC SYNDROME [None]
